FAERS Safety Report 7534903-6 (Version None)
Quarter: 2011Q2

REPORT INFORMATION
  Report Type: 
  Country: None (occurrence: None)
  Receive Date: 20110609
  Receipt Date: 20081127
  Transmission Date: 20111010
  Serious: Yes (Death, Hospitalization, Other)
  Sender: FDA-Public Use
  Company Number: PHHY2008CA23417

PATIENT
  Sex: Female

DRUGS (6)
  1. PAMIDRONATE DISODIUM [Suspect]
  2. ZOMETA [Suspect]
     Indication: BREAST CANCER METASTATIC
     Dosage: 4 MG, , EVERY 3 WEEKS
     Route: 042
     Dates: start: 20071102, end: 20080214
  3. DEXAMETHASONE [Concomitant]
     Dates: start: 20080101, end: 20080301
  4. MORPHINE [Concomitant]
     Dates: start: 20080101, end: 20080301
  5. CALCIUM CARBONATE [Concomitant]
     Dates: start: 20080101, end: 20080301
  6. VITAMIN D [Concomitant]
     Dates: start: 20080101, end: 20080301

REACTIONS (5)
  - DISEASE PROGRESSION [None]
  - DEATH [None]
  - PLEURAL EFFUSION [None]
  - BREAST CANCER METASTATIC [None]
  - MALIGNANT PLEURAL EFFUSION [None]
